FAERS Safety Report 17978987 (Version 2)
Quarter: 2020Q3

REPORT INFORMATION
  Report Type: Spontaneous
  Country: US (occurrence: US)
  Receive Date: 20200703
  Receipt Date: 20200715
  Transmission Date: 20201103
  Serious: No
  Sender: FDA-Public Use
  Company Number: US-TEVA-2020-US-1794511

PATIENT
  Sex: Female

DRUGS (3)
  1. CLONAZEPAM. [Suspect]
     Active Substance: CLONAZEPAM
     Dosage: 0.5 MG; ACTAVIS
     Route: 065
     Dates: start: 2008
  2. CLONAZEPAM. [Suspect]
     Active Substance: CLONAZEPAM
     Dosage: YELLOW PILLS; 0.5 MG; ACTAVIS
     Route: 065
     Dates: start: 2010
  3. CLONAZEPAM. [Suspect]
     Active Substance: CLONAZEPAM
     Dosage: TEVA
     Route: 065

REACTIONS (6)
  - Illness [Recovered/Resolved]
  - Abdominal discomfort [Recovered/Resolved]
  - Anxiety [Unknown]
  - Product availability issue [Unknown]
  - Abdominal pain upper [Unknown]
  - Expired product administered [Unknown]
